FAERS Safety Report 17523865 (Version 2)
Quarter: 2020Q3

REPORT INFORMATION
  Report Type: Report from Study
  Country: DE (occurrence: DE)
  Receive Date: 20200310
  Receipt Date: 20200722
  Transmission Date: 20201102
  Serious: Yes (Hospitalization)
  Sender: FDA-Public Use
  Company Number: DE-TAKEDA-2020TUS013008

PATIENT
  Sex: Female

DRUGS (2)
  1. PENTASA [Concomitant]
     Active Substance: MESALAMINE
     Dosage: UNK
  2. VEDOLIZUMAB [Suspect]
     Active Substance: VEDOLIZUMAB
     Indication: CROHN^S DISEASE
     Dosage: UNK
     Route: 042
     Dates: start: 20170322, end: 20180320

REACTIONS (5)
  - Urinary tract infection [Recovered/Resolved]
  - Enterocutaneous fistula [Recovered/Resolved]
  - Fistula [Recovered/Resolved]
  - Intestinal fistula [Recovered/Resolved]
  - Retroperitoneal abscess [Recovered/Resolved]

NARRATIVE: CASE EVENT DATE: 20200108
